FAERS Safety Report 22930384 (Version 3)
Quarter: 2023Q4

REPORT INFORMATION
  Report Type: Report from Study
  Country: US (occurrence: US)
  Receive Date: 20230911
  Receipt Date: 20231010
  Transmission Date: 20240110
  Serious: Yes (Hospitalization)
  Sender: FDA-Public Use
  Company Number: US-TAKEDA-2023TUS085107

PATIENT
  Sex: Female

DRUGS (3)
  1. IXAZOMIB [Suspect]
     Active Substance: IXAZOMIB
     Indication: Plasma cell myeloma
     Dosage: 4 MILLIGRAM
     Route: 048
     Dates: start: 20230816
  2. DEXAMETHASONE [Suspect]
     Active Substance: DEXAMETHASONE
     Indication: Plasma cell myeloma
     Dosage: 40 MILLIGRAM
     Route: 048
     Dates: start: 20230816
  3. POMALYST [Suspect]
     Active Substance: POMALIDOMIDE
     Indication: Plasma cell myeloma
     Dosage: 3 MILLIGRAM, QD
     Route: 048
     Dates: start: 20230816

REACTIONS (10)
  - Full blood count decreased [Not Recovered/Not Resolved]
  - Inflammation [Recovering/Resolving]
  - Cough [Unknown]
  - Gait disturbance [Unknown]
  - Bone pain [Unknown]
  - Emotional disorder [Unknown]
  - Bone lesion [Unknown]
  - Productive cough [Unknown]
  - Sputum discoloured [Unknown]
  - Constipation [Unknown]
